FAERS Safety Report 20246901 (Version 2)
Quarter: 2022Q1

REPORT INFORMATION
  Report Type: Spontaneous
  Country: US (occurrence: US)
  Receive Date: 20211229
  Receipt Date: 20220119
  Transmission Date: 20220423
  Serious: Yes (Hospitalization)
  Sender: FDA-Public Use
  Company Number: US-GW PHARMA-202112USGW06392

PATIENT

DRUGS (2)
  1. EPIDIOLEX [Suspect]
     Active Substance: CANNABIDIOL
     Indication: Epilepsy
     Dosage: 70 MILLIGRAM, BID (NURSE GAVE 700 MILLIGRAM, BID ACCIDENTALLY)
     Route: 048
     Dates: start: 20190904
  2. EPIDIOLEX [Suspect]
     Active Substance: CANNABIDIOL
     Indication: Epilepsy

REACTIONS (8)
  - Upper respiratory tract infection [Unknown]
  - Pyrexia [Unknown]
  - Feeding disorder [Unknown]
  - Mobility decreased [Unknown]
  - Somnolence [Unknown]
  - Wrong dose [Unknown]
  - Emergency care [Unknown]
  - Product supply issue [Unknown]

NARRATIVE: CASE EVENT DATE: 20210101
